FAERS Safety Report 7644337-1 (Version None)
Quarter: 2011Q3

REPORT INFORMATION
  Report Type: 
  Country: None (occurrence: None)
  Receive Date: 20110729
  Receipt Date: 20110718
  Transmission Date: 20111222
  Serious: Yes (Hospitalization)
  Sender: FDA-Public Use
  Company Number: CO-ELI_LILLY_AND_COMPANY-CO201107006065

PATIENT
  Age: 82 Year
  Sex: Male

DRUGS (14)
  1. ALLOPURINOL [Concomitant]
  2. BYETTA [Suspect]
     Indication: TYPE 2 DIABETES MELLITUS
     Dosage: 5 UG, BID
     Route: 058
     Dates: start: 20110713, end: 20110718
  3. CLONIDINE [Concomitant]
  4. NPH INSULIN [Concomitant]
     Dosage: 40 IU, EACH MORNING
  5. ACETAMINOPHEN [Concomitant]
  6. COLCHICINE [Concomitant]
  7. NPH INSULIN [Concomitant]
     Dosage: 30 IU, EACH EVENING
  8. FUROSEMIDE [Concomitant]
  9. AMLODIPINE BESYLATE [Concomitant]
  10. ASPIRIN [Concomitant]
  11. LOVASTATIN [Concomitant]
  12. CALCIUM ACETATE [Concomitant]
  13. FOLIC ACID [Concomitant]
  14. LOSARTAN POTASSIUM [Concomitant]

REACTIONS (5)
  - DISCOMFORT [None]
  - VISION BLURRED [None]
  - VOMITING [None]
  - BLOOD GLUCOSE INCREASED [None]
  - PANCREATITIS [None]
